FAERS Safety Report 8362477-9 (Version None)
Quarter: 2012Q2

REPORT INFORMATION
  Report Type: 
  Country: None (occurrence: None)
  Receive Date: 20120514
  Receipt Date: 20120514
  Transmission Date: 20120825
  Serious: Yes (Other)
  Sender: FDA-Public Use
  Company Number: None

PATIENT
  Age: 54 Year
  Sex: Male

DRUGS (2)
  1. HYDROCODONE BITARTRATE + ACETAMINOPHEN [Suspect]
  2. HYDROCODONE BITARTRATE + ACETAMINOPHEN [Suspect]
     Indication: PAIN
     Dosage: 90 THREE TIMES A DAY PO
     Route: 048
     Dates: start: 20100203, end: 20120511

REACTIONS (6)
  - DECREASED APPETITE [None]
  - EUPHORIC MOOD [None]
  - NERVOUSNESS [None]
  - PRURITUS [None]
  - PALPITATIONS [None]
  - TIC [None]
